FAERS Safety Report 14281205 (Version 1)
Quarter: 2017Q4

REPORT INFORMATION
  Report Type: Report from Study
  Country: JP (occurrence: JP)
  Receive Date: 20171213
  Receipt Date: 20171213
  Transmission Date: 20180321
  Serious: Yes (Hospitalization)
  Sender: FDA-Public Use
  Company Number: JP-VIFOR (INTERNATIONAL) INC.-VIT-2017-07376

PATIENT
  Age: 74 Year
  Sex: Female
  Weight: 42 kg

DRUGS (15)
  1. ALFAROL [Concomitant]
     Active Substance: ALFACALCIDOL
     Route: 048
  2. VELPHORO [Suspect]
     Active Substance: FERRIC OXYHYDROXIDE
     Route: 048
     Dates: start: 20170202, end: 20170224
  3. LAXOBERON [Concomitant]
     Active Substance: SODIUM PICOSULFATE
     Route: 048
  4. DOPS [Concomitant]
     Active Substance: DROXIDOPA
     Route: 048
  5. ARTIST [Concomitant]
     Active Substance: CARVEDILOL
     Route: 048
  6. LIPITOR [Concomitant]
     Active Substance: ATORVASTATIN CALCIUM
     Route: 048
  7. BAYASPIRIN [Concomitant]
     Active Substance: ASPIRIN
     Indication: PROPHYLAXIS
     Route: 048
  8. TAKEPRON [Concomitant]
     Active Substance: LANSOPRAZOLE
     Indication: PROPHYLAXIS AGAINST GASTROINTESTINAL ULCER
     Route: 048
  9. CALTAN [Concomitant]
     Active Substance: CALCIUM CARBONATE
     Indication: HYPERPHOSPHATAEMIA
     Route: 048
  10. VELPHORO [Suspect]
     Active Substance: FERRIC OXYHYDROXIDE
     Indication: HYPERPHOSPHATAEMIA
     Route: 048
     Dates: start: 20161120, end: 20170201
  11. NESP [Suspect]
     Active Substance: DARBEPOETIN ALFA
     Dates: end: 20161205
  12. RISUMIC [Concomitant]
     Active Substance: AMEZINIUM METILSULFATE
     Route: 048
  13. FESIN [Concomitant]
     Active Substance: IRON SUCROSE
     Dates: end: 20161205
  14. NESP [Suspect]
     Active Substance: DARBEPOETIN ALFA
     Dates: start: 20161212, end: 20170109
  15. TRAZENTA [Concomitant]
     Active Substance: LINAGLIPTIN
     Route: 048

REACTIONS (4)
  - Haematocrit increased [Recovering/Resolving]
  - Vascular access malfunction [Recovered/Resolved]
  - Red blood cell count increased [Recovering/Resolving]
  - Haemoglobin increased [Recovering/Resolving]

NARRATIVE: CASE EVENT DATE: 20161223
